FAERS Safety Report 25182040 (Version 3)
Quarter: 2025Q2

REPORT INFORMATION
  Report Type: Spontaneous
  Country: JP (occurrence: JP)
  Receive Date: 20250410
  Receipt Date: 20250601
  Transmission Date: 20250716
  Serious: Yes (Life-Threatening, Hospitalization, Other)
  Sender: ABBVIE
  Company Number: JP-ABBVIE-6212885

PATIENT
  Age: 46 Year
  Sex: Female
  Weight: 63 kg

DRUGS (7)
  1. RINVOQ [Suspect]
     Active Substance: UPADACITINIB
     Indication: Spondylitis
     Dosage: FORM STRENGTH: 15 MILLIGRAM
     Route: 048
     Dates: start: 20240213, end: 20240704
  2. LOXOPROFEN SODIUM DIHYDRATE [Concomitant]
     Active Substance: LOXOPROFEN SODIUM DIHYDRATE
     Indication: Spondylitis
     Dosage: 60 MILLIGRAM
     Route: 048
     Dates: start: 20230901, end: 20240827
  3. REBAMIPIDE [Concomitant]
     Active Substance: REBAMIPIDE
     Indication: Prophylaxis against gastrointestinal ulcer
     Route: 048
     Dates: start: 20230901, end: 20240827
  4. METHOTREXATE [Suspect]
     Active Substance: METHOTREXATE
     Indication: Spondylitis
     Route: 048
     Dates: start: 20221227
  5. METHOTREXATE [Suspect]
     Active Substance: METHOTREXATE
     Indication: Spondylitis
     Route: 048
     Dates: start: 20221022, end: 20221226
  6. METHOTREXATE [Suspect]
     Active Substance: METHOTREXATE
     Indication: Spondylitis
     Dosage: 8 MILLIGRAM
     Route: 048
     Dates: start: 20220924, end: 20221021
  7. KETOPROFEN [Concomitant]
     Active Substance: KETOPROFEN
     Indication: Spondylitis
     Dosage: 20 MILLIGRAM
     Route: 062
     Dates: start: 20240527

REACTIONS (2)
  - Breast cancer [Unknown]
  - Metastases to lymph nodes [Unknown]

NARRATIVE: CASE EVENT DATE: 20240704
